FAERS Safety Report 21456748 (Version 1)
Quarter: 2022Q4

REPORT INFORMATION
  Report Type: Report from Study
  Country: US (occurrence: US)
  Receive Date: 20221014
  Receipt Date: 20221014
  Transmission Date: 20230113
  Serious: No
  Sender: FDA-Public Use
  Company Number: US-ABBVIE-4145289

PATIENT
  Sex: Female

DRUGS (1)
  1. RINVOQ [Suspect]
     Active Substance: UPADACITINIB
     Indication: Dermatitis atopic
     Dosage: STARTER PACK 15 MG/ONCE DAILY/ FORM STRENGTH: 30MG
     Route: 048

REACTIONS (2)
  - Headache [Unknown]
  - Nasopharyngitis [Unknown]
